APPROVED DRUG PRODUCT: DEXTROAMPHETAMINE SULFATE
Active Ingredient: DEXTROAMPHETAMINE SULFATE
Strength: 5MG
Dosage Form/Route: CAPSULE, EXTENDED RELEASE;ORAL
Application: A076814 | Product #001
Applicant: ABLE LABORATORIES INC
Approved: Aug 25, 2004 | RLD: No | RS: No | Type: DISCN